FAERS Safety Report 9854756 (Version 1)
Quarter: 2014Q1

REPORT INFORMATION
  Report Type: Spontaneous
  Country: US (occurrence: US)
  Receive Date: 20140130
  Receipt Date: 20140130
  Transmission Date: 20141002
  Serious: No
  Sender: FDA-Public Use
  Company Number: US-PFIZER INC-2014024645

PATIENT
  Age: 64 Year
  Sex: Female
  Weight: 58.96 kg

DRUGS (3)
  1. ADVIL [Suspect]
     Indication: PAIN IN EXTREMITY
     Dosage: UNK, TWO TIMES A WEEK
     Route: 048
     Dates: start: 201401, end: 201401
  2. TOPROL XL [Concomitant]
     Dosage: UNK
  3. KLONOPIN [Concomitant]
     Dosage: 0.25 MG, UNK

REACTIONS (3)
  - Dysphagia [Unknown]
  - Foreign body [Unknown]
  - Throat irritation [Recovered/Resolved]
